FAERS Safety Report 4356090-8 (Version None)
Quarter: 2004Q2

REPORT INFORMATION
  Report Type: 
  Country: None (occurrence: None)
  Receive Date: 20040506
  Receipt Date: 20040422
  Transmission Date: 20050107
  Serious: Yes (Hospitalization)
  Sender: FDA-Public Use
  Company Number: 200403126

PATIENT
  Age: 69 Year
  Sex: Female

DRUGS (3)
  1. ALESION (EPINASTINE) [Suspect]
     Indication: ECZEMA
     Dosage: MG
     Dates: start: 20040105
  2. LOCHOL [Suspect]
     Indication: HYPERLIPIDAEMIA
     Dosage: MG
     Dates: start: 19990201
  3. INFLUENZA VACCINE [Concomitant]

REACTIONS (4)
  - DRUG ERUPTION [None]
  - ECZEMA [None]
  - FEELING ABNORMAL [None]
  - VACCINATION COMPLICATION [None]
